FAERS Safety Report 5671979-5 (Version None)
Quarter: 2008Q1

REPORT INFORMATION
  Report Type: 
  Country: None (occurrence: None)
  Receive Date: 20080317
  Receipt Date: 20080317
  Transmission Date: 20080703
  Serious: Yes (Other)
  Sender: FDA-Public Use
  Company Number: None

PATIENT
  Age: 9 Year
  Sex: Female
  Weight: 42.1845 kg

DRUGS (2)
  1. SINGULAIR [Suspect]
     Indication: ASTHMA
     Dosage: ONE TABLET BEDTIME PO
     Route: 048
  2. ZYRTEC [Suspect]
     Indication: RHINITIS ALLERGIC
     Dosage: 2 TEASPOONS BEDTIME PO
     Route: 048

REACTIONS (10)
  - ABDOMINAL PAIN [None]
  - ABNORMAL BEHAVIOUR [None]
  - ABNORMAL DREAMS [None]
  - ANGER [None]
  - CRYING [None]
  - DEPRESSION [None]
  - DISTURBANCE IN ATTENTION [None]
  - MOOD SWINGS [None]
  - SOMNAMBULISM [None]
  - SUICIDAL IDEATION [None]
